FAERS Safety Report 6411799-7 (Version None)
Quarter: 2009Q4

REPORT INFORMATION
  Report Type: 
  Country: None (occurrence: None)
  Receive Date: 20091023
  Receipt Date: 20091008
  Transmission Date: 20100525
  Serious: Yes (Death, Other)
  Sender: FDA-Public Use
  Company Number: US-BRISTOL-MYERS SQUIBB COMPANY-14826978

PATIENT
  Age: 78 Year
  Sex: Female
  Weight: 68 kg

DRUGS (22)
  1. MEGACE ES [Suspect]
     Dosage: 1 DF= 625MG/5M.L;5CC
  2. COUMADIN [Suspect]
     Indication: ANTICOAGULANT THERAPY
  3. LOVENOX [Suspect]
     Indication: ANTICOAGULANT THERAPY
  4. DUONEB [Concomitant]
     Dosage: 4 TIMES A DAY
  5. ROBITUSSIN [Concomitant]
     Dosage: 1DF: 5CC EVERY 4 HOURS
  6. METHADONE HYDROCHLORIDE [Concomitant]
     Dosage: TWO TABLETS EVERY EIGHT HOURS
     Route: 048
  7. LORCET-HD [Concomitant]
     Indication: PAIN
     Dosage: 1DF: 10(UNIT NOT SPECIFIED);ONE EVERY SIX HOURS
  8. VITAMIN D [Concomitant]
     Dosage: AND THEN MONTHLY FOR MAINTENANCE
  9. KLONOPIN [Concomitant]
  10. QUESTRAN [Concomitant]
     Dosage: ONE POCKET WITH WATER
  11. ZOFRAN [Concomitant]
     Indication: NAUSEA
     Dosage: EVERY 8HRS
  12. ZOFRAN [Concomitant]
     Indication: VOMITING
     Dosage: EVERY 8HRS
  13. LEVSIN [Concomitant]
     Dosage: ONE EVERY 4HRS
  14. LYRICA [Concomitant]
     Route: 048
  15. DOXEPIN HCL [Concomitant]
  16. DEPAKOTE [Concomitant]
  17. CYMBALTA [Concomitant]
  18. PREDNISONE [Concomitant]
  19. ATENOLOL [Concomitant]
  20. SYNTHROID [Concomitant]
  21. MUCINEX [Concomitant]
     Dosage: 1DF: ONE TABLET
  22. FLORAN [Concomitant]

REACTIONS (3)
  - DRUG TOXICITY [None]
  - INTERNATIONAL NORMALISED RATIO FLUCTUATION [None]
  - UPPER GASTROINTESTINAL HAEMORRHAGE [None]
